FAERS Safety Report 7774725-4 (Version None)
Quarter: 2011Q3

REPORT INFORMATION
  Report Type: 
  Country: None (occurrence: None)
  Receive Date: 20110923
  Receipt Date: 20110913
  Transmission Date: 20111222
  Serious: Yes (Other)
  Sender: FDA-Public Use
  Company Number: US-ROCHE-803828

PATIENT
  Sex: Female

DRUGS (1)
  1. BONIVA [Suspect]
     Dosage: SINCE  YEARS
     Route: 065

REACTIONS (3)
  - HYPERAESTHESIA [None]
  - DEAFNESS [None]
  - EAR INFECTION [None]
